APPROVED DRUG PRODUCT: PRIMAXIN
Active Ingredient: CILASTATIN SODIUM; IMIPENEM
Strength: EQ 250MG BASE/VIAL;250MG/VIAL
Dosage Form/Route: INJECTABLE;INJECTION
Application: A062756 | Product #001
Applicant: MERCK AND CO INC
Approved: Jan 8, 1987 | RLD: No | RS: No | Type: DISCN